FAERS Safety Report 18431701 (Version 2)
Quarter: 2020Q4

REPORT INFORMATION
  Report Type: Spontaneous
  Country: US (occurrence: US)
  Receive Date: 20201027
  Receipt Date: 20201120
  Transmission Date: 20210114
  Serious: No
  Sender: FDA-Public Use
  Company Number: US-ASTRAZENECA-2020SF37065

PATIENT
  Sex: Male

DRUGS (1)
  1. BYDUREON BCISE [Suspect]
     Active Substance: EXENATIDE
     Route: 065

REACTIONS (4)
  - Injection site haemorrhage [Unknown]
  - Injection site mass [Unknown]
  - Drug delivery system issue [Unknown]
  - Device leakage [Unknown]
